FAERS Safety Report 20767992 (Version 1)
Quarter: 2022Q2

REPORT INFORMATION
  Report Type: Spontaneous
  Country: JP (occurrence: JP)
  Receive Date: 20220429
  Receipt Date: 20220429
  Transmission Date: 20220721
  Serious: No
  Sender: FDA-Public Use
  Company Number: JP-MSD-M2022-13546

PATIENT
  Age: 33 Year
  Sex: Female

DRUGS (3)
  1. LAGEVRIO [Suspect]
     Active Substance: CELLULOSE, MICROCRYSTALLINE\CROSCARMELLOSE SODIUM\FERRIC OXIDE RED\HYPROMELLOSES\HYPROMELLOSES\MAGNE
     Indication: COVID-19 treatment
     Dosage: 800 MILLIGRAM, BID
     Route: 048
     Dates: start: 20220301, end: 20220308
  2. PLAQUENIL [Suspect]
     Active Substance: HYDROXYCHLOROQUINE SULFATE
     Dosage: 200 MILLIGRAM, QOD
     Route: 048
     Dates: start: 20191102
  3. PLAQUENIL [Suspect]
     Active Substance: HYDROXYCHLOROQUINE SULFATE
     Dosage: 400 MILLIGRAM, QOD
     Route: 048
     Dates: start: 20191102

REACTIONS (2)
  - Urticaria [Recovering/Resolving]
  - Product use issue [Unknown]

NARRATIVE: CASE EVENT DATE: 20220304
